FAERS Safety Report 24454302 (Version 2)
Quarter: 2024Q4

REPORT INFORMATION
  Report Type: Report from Study
  Country: CA (occurrence: CA)
  Receive Date: 20241017
  Receipt Date: 20241018
  Transmission Date: 20250115
  Serious: No
  Sender: ROCHE
  Company Number: CA-ROCHE-3412592

PATIENT
  Age: 69 Year
  Sex: Male

DRUGS (5)
  1. RITUXAN [Suspect]
     Active Substance: RITUXIMAB
     Indication: Granulomatosis with polyangiitis
     Dosage: 1G X 1 INFUSION THEN 500MG EVERY 6 MONTHS
     Route: 041
     Dates: start: 20230616, end: 20231011
  2. RITUXAN [Suspect]
     Active Substance: RITUXIMAB
     Route: 041
  3. AMLODIPINE [Concomitant]
     Active Substance: AMLODIPINE BESYLATE
  4. ATORVASTATIN [Concomitant]
     Active Substance: ATORVASTATIN
  5. LASIX [Concomitant]
     Active Substance: FUROSEMIDE

REACTIONS (1)
  - Gout [Unknown]
